FAERS Safety Report 20748222 (Version 3)
Quarter: 2022Q2

REPORT INFORMATION
  Report Type: Report from Study
  Country: CA (occurrence: CA)
  Receive Date: 20220426
  Receipt Date: 20220608
  Transmission Date: 20220721
  Serious: Yes (Hospitalization)
  Sender: FDA-Public Use
  Company Number: CA-AMGEN-CANSL2022025248

PATIENT
  Age: 64 Year
  Sex: Male
  Weight: 78 kg

DRUGS (4)
  1. MVASI [Suspect]
     Active Substance: BEVACIZUMAB-AWWB
     Indication: Glioblastoma
     Dosage: 400 MILLIGRAM, Q3WK
     Route: 042
     Dates: start: 20200219
  2. MVASI [Suspect]
     Active Substance: BEVACIZUMAB-AWWB
     Dosage: 400 MILLIGRAM, Q3WK
     Route: 042
  3. DEXAMETHASONE [Concomitant]
     Active Substance: DEXAMETHASONE
     Dosage: UNK
  4. PREDNISONE [Concomitant]
     Active Substance: PREDNISONE
     Dosage: 5 MILLIGRAM, QD
     Route: 048

REACTIONS (20)
  - Lung disorder [Unknown]
  - Chest pain [Unknown]
  - Unevaluable event [Unknown]
  - Dry skin [Recovered/Resolved]
  - Cough [Unknown]
  - Dysphonia [Recovered/Resolved]
  - Biopsy [Unknown]
  - Off label use [Unknown]
  - Memory impairment [Unknown]
  - Disturbance in attention [Unknown]
  - Confusional state [Unknown]
  - Aphasia [Unknown]
  - Cognitive disorder [Unknown]
  - Malaise [Not Recovered/Not Resolved]
  - Depressed mood [Unknown]
  - Hypogeusia [Unknown]
  - Vision blurred [Unknown]
  - Fatigue [Not Recovered/Not Resolved]
  - Decreased appetite [Not Recovered/Not Resolved]
  - Weight decreased [Unknown]

NARRATIVE: CASE EVENT DATE: 20200219
